FAERS Safety Report 7528871-0 (Version None)
Quarter: 2011Q2

REPORT INFORMATION
  Report Type: 
  Country: None (occurrence: None)
  Receive Date: 20110607
  Receipt Date: 20101109
  Transmission Date: 20111010
  Serious: No
  Sender: FDA-Public Use
  Company Number: US-ASTRAZENECA-2010SE55647

PATIENT
  Sex: Male

DRUGS (3)
  1. CRESTOR [Concomitant]
  2. BLOOD PRESSURE MEDICINE [Concomitant]
  3. PRILOSEC OTC [Suspect]
     Indication: IRRITABLE BOWEL SYNDROME
     Route: 048
     Dates: start: 20100907, end: 20101106

REACTIONS (2)
  - RHINORRHOEA [None]
  - EPISTAXIS [None]
